FAERS Safety Report 14656684 (Version 2)
Quarter: 2018Q1

REPORT INFORMATION
  Report Type: Report from Study
  Country: US (occurrence: US)
  Receive Date: 20180319
  Receipt Date: 20180321
  Transmission Date: 20180509
  Serious: Yes (Hospitalization, Other)
  Sender: FDA-Public Use
  Company Number: US-GILEAD-2018-0326338

PATIENT
  Age: 51 Year
  Sex: Female

DRUGS (1)
  1. RANOLAZINE. [Suspect]
     Active Substance: RANOLAZINE
     Indication: PRODUCT USED FOR UNKNOWN INDICATION
     Dosage: 500 MG, UNK
     Route: 048
     Dates: start: 20160101

REACTIONS (5)
  - Breast cancer [Unknown]
  - Peripheral arterial occlusive disease [Not Recovered/Not Resolved]
  - Cerebrovascular accident [Unknown]
  - Catheterisation cardiac [Unknown]
  - Neoplasm malignant [Not Recovered/Not Resolved]
